FAERS Safety Report 16899242 (Version 1)
Quarter: 2019Q4

REPORT INFORMATION
  Report Type: Other
  Country: US (occurrence: US)
  Receive Date: 20191009
  Receipt Date: 20191009
  Transmission Date: 20200122
  Serious: No
  Sender: FDA-Public Use
  Company Number: US-FAGRON STERILE SERVICES-2075456

PATIENT

DRUGS (1)
  1. TROPICAMIDE 1% / CYCLOPENTOLATE 1%/ PHENYLEPHRINE 2.5% OPTHALMIC SOLUT [Suspect]
     Active Substance: CYCLOPENTOLATE\PHENYLEPHRINE\TROPICAMIDE
     Route: 061

REACTIONS (1)
  - Skin toxicity [None]
